FAERS Safety Report 20132130 (Version 1)
Quarter: 2021Q4

REPORT INFORMATION
  Report Type: Spontaneous
  Country: RU (occurrence: None)
  Receive Date: 20211130
  Receipt Date: 20211130
  Transmission Date: 20220303
  Serious: Yes (Other)
  Sender: FDA-Public Use
  Company Number: RU-ROCHE-2964204

PATIENT
  Age: 40 Year

DRUGS (1)
  1. ALECTINIB [Suspect]
     Active Substance: ALECTINIB
     Indication: Product used for unknown indication
     Route: 065

REACTIONS (4)
  - Epilepsy [Unknown]
  - Disease progression [Unknown]
  - Headache [Unknown]
  - Nausea [Unknown]
